FAERS Safety Report 7077217-3 (Version None)
Quarter: 2010Q4

REPORT INFORMATION
  Report Type: 
  Country: None (occurrence: None)
  Receive Date: 20101101
  Receipt Date: 20101025
  Transmission Date: 20110411
  Serious: Yes (Other)
  Sender: FDA-Public Use
  Company Number: DZ-ROCHE-736724

PATIENT

DRUGS (6)
  1. BEVACIZUMAB [Suspect]
     Route: 065
  2. FOLINIC ACID [Suspect]
     Route: 065
  3. FLUOROURACIL [Suspect]
     Route: 065
  4. OXALIPLATIN [Suspect]
     Route: 065
  5. IRINOTECAN HCL [Suspect]
     Route: 065
  6. CETUXIMAB [Suspect]
     Route: 065

REACTIONS (7)
  - DERMATITIS ACNEIFORM [None]
  - DIARRHOEA [None]
  - HYPERSENSITIVITY [None]
  - MUCOSAL INFLAMMATION [None]
  - NEUTROPENIA [None]
  - THROMBOCYTOPENIA [None]
  - VOMITING [None]
